FAERS Safety Report 6131484-9 (Version None)
Quarter: 2009Q1

REPORT INFORMATION
  Report Type: 
  Country: None (occurrence: None)
  Receive Date: 20090325
  Receipt Date: 20081029
  Transmission Date: 20090719
  Serious: Yes (Hospitalization)
  Sender: FDA-Public Use
  Company Number: US-BRISTOL-MYERS SQUIBB COMPANY-14306856

PATIENT
  Age: 65 Year
  Sex: Male
  Weight: 84 kg

DRUGS (7)
  1. ERBITUX [Suspect]
     Indication: COLORECTAL CANCER STAGE IV
     Dosage: RECEIVED FIRST DOSE ON 30JUL08
     Dates: start: 20080806, end: 20080806
  2. IRINOTECAN HCL [Concomitant]
  3. STEROIDS [Concomitant]
     Indication: PREMEDICATION
  4. ATROPINE [Concomitant]
     Indication: PREMEDICATION
  5. DIOVAN [Concomitant]
  6. PROSCAR [Concomitant]
  7. FLOMAX [Concomitant]

REACTIONS (3)
  - DEHYDRATION [None]
  - DIARRHOEA [None]
  - RASH [None]
